FAERS Safety Report 7208080-5 (Version None)
Quarter: 2011Q1

REPORT INFORMATION
  Report Type: 
  Country: None (occurrence: None)
  Receive Date: 20110104
  Receipt Date: 20101229
  Transmission Date: 20110831
  Serious: No
  Sender: FDA-Public Use
  Company Number: US-PFIZER INC-2010181636

PATIENT
  Sex: Male
  Weight: 97.5 kg

DRUGS (2)
  1. EFFEXOR [Suspect]
     Indication: MAJOR DEPRESSION
     Dosage: 37.5 MG, 2X/DAY
     Route: 048
     Dates: start: 20101101
  2. BACLOFEN [Concomitant]
     Dosage: 10 MG, 3X/DAY

REACTIONS (3)
  - HYPERSOMNIA [None]
  - HANGOVER [None]
  - SEDATION [None]
